FAERS Safety Report 7600005-3 (Version None)
Quarter: 2011Q3

REPORT INFORMATION
  Report Type: 
  Country: None (occurrence: None)
  Receive Date: 20110711
  Receipt Date: 20110704
  Transmission Date: 20111222
  Serious: Yes (Other)
  Sender: FDA-Public Use
  Company Number: DE-JNJFOC-20110607346

PATIENT
  Age: 72 Year
  Sex: Female

DRUGS (2)
  1. DURAGESIC-100 [Suspect]
     Indication: PAIN
     Route: 062
     Dates: start: 20110501
  2. NOVALGIN [Suspect]
     Indication: PAIN
     Route: 065

REACTIONS (1)
  - GAMMA-GLUTAMYLTRANSFERASE INCREASED [None]
